FAERS Safety Report 8241467-0 (Version None)
Quarter: 2012Q1

REPORT INFORMATION
  Report Type: 
  Country: None (occurrence: None)
  Receive Date: 20120328
  Receipt Date: 20120322
  Transmission Date: 20120608
  Serious: Yes (Other)
  Sender: FDA-Public Use
  Company Number: CA-ABBOTT-12P-028-0918157-00

PATIENT
  Sex: Male
  Weight: 61.29 kg

DRUGS (8)
  1. INDOSID [Concomitant]
     Indication: BLOOD POTASSIUM ABNORMAL
  2. UNKNOWN HEART MEDICATION [Concomitant]
     Indication: CARDIAC DISORDER
     Dates: start: 20060101
  3. TYLENOL [Concomitant]
     Indication: RHEUMATOID ARTHRITIS
     Route: 048
     Dates: start: 20060101
  4. METHOTREXATE [Concomitant]
     Indication: RHEUMATOID ARTHRITIS
     Route: 058
     Dates: start: 20050101
  5. HUMIRA [Suspect]
     Indication: RHEUMATOID ARTHRITIS
     Route: 058
     Dates: start: 20060126, end: 20110101
  6. UNKNOWN MEDICATIONS [Concomitant]
     Indication: PRODUCT USED FOR UNKNOWN INDICATION
  7. UNKNOWN BLOOD THINNER [Concomitant]
     Indication: ANTICOAGULANT THERAPY
  8. HUMIRA [Suspect]
     Dates: start: 20110101

REACTIONS (6)
  - PAIN [None]
  - POST-TRAUMATIC STRESS DISORDER [None]
  - MUSCLE DISORDER [None]
  - MYOCARDIAL INFARCTION [None]
  - ARTERIOSCLEROSIS CORONARY ARTERY [None]
  - STAB WOUND [None]
